FAERS Safety Report 10447889 (Version 2)
Quarter: 2014Q4

REPORT INFORMATION
  Report Type: Spontaneous
  Country: US (occurrence: US)
  Receive Date: 20140911
  Receipt Date: 20141015
  Transmission Date: 20150528
  Serious: Yes (Hospitalization, Other)
  Sender: FDA-Public Use
  Company Number: US-INCYTE CORPORATION-2014IN002536

PATIENT
  Sex: Male

DRUGS (4)
  1. JAKAFI [Suspect]
     Active Substance: RUXOLITINIB
     Indication: MYELOFIBROSIS
     Dosage: 10 MG, BID
     Route: 048
     Dates: start: 2014, end: 2014
  2. JAKAFI [Suspect]
     Active Substance: RUXOLITINIB
     Dosage: 10 MG, BID
     Route: 048
     Dates: start: 20140901, end: 2014
  3. JAKAFI [Suspect]
     Active Substance: RUXOLITINIB
     Dosage: 5 MG, QID
     Route: 048
     Dates: start: 20141007
  4. JAKAFI [Suspect]
     Active Substance: RUXOLITINIB
     Dosage: 10 MG, BID
     Route: 048
     Dates: start: 2014, end: 201408

REACTIONS (7)
  - Pyrexia [Unknown]
  - Haemorrhage [Unknown]
  - Squamous cell carcinoma [Unknown]
  - Myocardial infarction [Unknown]
  - Asthenia [Unknown]
  - Myelofibrosis [Unknown]
  - Dizziness [Unknown]
